FAERS Safety Report 10241462 (Version 1)
Quarter: 2014Q2

REPORT INFORMATION
  Report Type: Spontaneous
  Country: TW (occurrence: TW)
  Receive Date: 20140617
  Receipt Date: 20140617
  Transmission Date: 20141212
  Serious: Yes (Other)
  Sender: FDA-Public Use
  Company Number: TW-ACTAVIS-2014-13503

PATIENT
  Age: 35 Year
  Sex: Female

DRUGS (6)
  1. CARBAMAZEPINE (UNKNOWN) [Suspect]
     Indication: MOOD SWINGS
     Dosage: 400 MG, DAILY
     Route: 065
  2. CARBAMAZEPINE (UNKNOWN) [Suspect]
     Dosage: 200 MG, DAILY
     Route: 065
  3. RISPERIDONE [Concomitant]
     Indication: SCHIZOPHRENIA
     Dosage: 6 MG, DAILY
     Route: 048
  4. RISPERIDONE [Concomitant]
     Indication: AFFECT LABILITY
  5. BIPERIDEN [Concomitant]
     Indication: EXTRAPYRAMIDAL DISORDER
     Dosage: 4 MG, DAILY
     Route: 065
  6. LORAZEPAM [Concomitant]
     Indication: SLEEP DISORDER
     Dosage: 1 MG, DAILY
     Route: 065

REACTIONS (1)
  - Drug reaction with eosinophilia and systemic symptoms [Recovered/Resolved]
